FAERS Safety Report 19173916 (Version 2)
Quarter: 2021Q2

REPORT INFORMATION
  Report Type: Spontaneous
  Country: CH (occurrence: CZ)
  Receive Date: 20210423
  Receipt Date: 20210521
  Transmission Date: 20210717
  Serious: Yes (Other)
  Sender: FDA-Public Use
  Company Number: CH-ACCORD-223395

PATIENT
  Age: 52 Year
  Sex: Male

DRUGS (5)
  1. SAFINAMIDE [Concomitant]
     Active Substance: SAFINAMIDE
     Indication: PARKINSON^S DISEASE
  2. ROPINIROLE/ROPINIROLE HYDROCHLORIDE [Suspect]
     Active Substance: ROPINIROLE HYDROCHLORIDE
     Indication: PARKINSON^S DISEASE
     Dates: start: 2011, end: 201809
  3. ROPINIROLE/ROPINIROLE HYDROCHLORIDE [Suspect]
     Active Substance: ROPINIROLE HYDROCHLORIDE
     Indication: PARKINSON^S DISEASE
  4. ROPINIROLE/ROPINIROLE HYDROCHLORIDE [Suspect]
     Active Substance: ROPINIROLE HYDROCHLORIDE
     Indication: PARKINSON^S DISEASE
     Dates: end: 201809
  5. CARBIDOPA/ENTACAPONE/LEVODOPA [Concomitant]
     Active Substance: CARBIDOPA\ENTACAPONE\LEVODOPA
     Indication: PARKINSON^S DISEASE
     Dosage: 675/168.5/1000 MG DISTRIBUTED IN FIVE DOSES

REACTIONS (7)
  - Hypomania [Recovered/Resolved]
  - Apathy [Recovering/Resolving]
  - Anxiety [Recovering/Resolving]
  - Libido increased [Recovered/Resolved]
  - Depressive symptom [Recovering/Resolving]
  - Impulse-control disorder [Recovered/Resolved]
  - Abnormal behaviour [Recovered/Resolved]

NARRATIVE: CASE EVENT DATE: 2014
